FAERS Safety Report 15531524 (Version 2)
Quarter: 2019Q1

REPORT INFORMATION
  Report Type: Spontaneous
  Country: IT (occurrence: IT)
  Receive Date: 20181019
  Receipt Date: 20190214
  Transmission Date: 20190417
  Serious: Yes (Hospitalization)
  Sender: FDA-Public Use
  Company Number: IT-ACCORD-073631

PATIENT
  Age: 67 Year
  Sex: Male

DRUGS (5)
  1. TRIMETON [Concomitant]
     Active Substance: CHLORPHENIRAMINE MALEATE
  2. DEXAMETHASONE. [Concomitant]
     Active Substance: DEXAMETHASONE
  3. OXALIPLATINO ACCORD HEALTHCARE [Suspect]
     Active Substance: OXALIPLATIN
     Indication: COLORECTAL CANCER
     Route: 042
     Dates: start: 20180222
  4. RANITIDINA S.A.L.F. [Concomitant]
  5. ONDANSETRONE ACCORD HEALTHCARE [Concomitant]

REACTIONS (3)
  - Dysarthria [Recovered/Resolved]
  - Dyslalia [Recovered/Resolved]
  - Muscle contracture [Recovered/Resolved]

NARRATIVE: CASE EVENT DATE: 20180315
